FAERS Safety Report 8740273 (Version 2)
Quarter: 2013Q4

REPORT INFORMATION
  Report Type: Spontaneous
  Country: US (occurrence: US)
  Receive Date: 20120823
  Receipt Date: 20131101
  Transmission Date: 20140711
  Serious: No
  Sender: FDA-Public Use
  Company Number: US-009507513-1208USA002406

PATIENT
  Age: 63 Year
  Sex: Male

DRUGS (1)
  1. VICTRELIS [Suspect]
     Indication: HEPATITIS C
     Dosage: 800 MG, TID
     Route: 048
     Dates: start: 20120711, end: 20120802

REACTIONS (5)
  - Decreased appetite [Unknown]
  - Pain [Unknown]
  - Rash generalised [Unknown]
  - Depression [Unknown]
  - Sleep disorder [Unknown]
